FAERS Safety Report 6729008-8 (Version None)
Quarter: 2010Q2

REPORT INFORMATION
  Report Type: 
  Country: None (occurrence: None)
  Receive Date: 20100517
  Receipt Date: 20100401
  Transmission Date: 20101027
  Serious: No
  Sender: FDA-Public Use
  Company Number: US-ABBOTT-10P-163-0635989-00

PATIENT
  Weight: 80.812 kg

DRUGS (5)
  1. SIMCOR [Suspect]
     Indication: BLOOD CHOLESTEROL INCREASED
     Dosage: 500MG/20MG DAILY AT BEDTIME
     Dates: start: 20100324
  2. METHOTREXATE [Concomitant]
     Indication: DERMATOMYOSITIS
     Dosage: 25MG WEEKLY
     Route: 048
  3. MEDROL [Concomitant]
     Indication: DERMATOMYOSITIS
     Route: 048
  4. CALCIUM [Concomitant]
     Indication: DRUG USE FOR UNKNOWN INDICATION
     Route: 048
  5. TOPROL-XL [Concomitant]
     Indication: DRUG USE FOR UNKNOWN INDICATION
     Dosage: AT BEDTIME
     Route: 048

REACTIONS (1)
  - FATIGUE [None]
